FAERS Safety Report 7347206-X (Version None)
Quarter: 2011Q1

REPORT INFORMATION
  Report Type: 
  Country: None (occurrence: None)
  Receive Date: 20110311
  Receipt Date: 20110310
  Transmission Date: 20110831
  Serious: Yes (Other)
  Sender: FDA-Public Use
  Company Number: FR-PFIZER INC-2011035038

PATIENT
  Sex: Female

DRUGS (11)
  1. ANDROTARDYL [Concomitant]
     Dosage: 125 MG, CYCLIC, EVERY 2 WEEKS
     Dates: start: 20070418
  2. SOMATROPIN [Suspect]
     Dosage: 0.3 MG, 1X/DAY
     Route: 050
     Dates: start: 20040914
  3. ANDROTARDYL [Concomitant]
     Indication: HYPOGONADISM
     Dosage: 1 DF, EVERY 3 WEEKS
     Dates: start: 20060926
  4. PANTESTON [Concomitant]
     Indication: HYPOGONADISM
     Dosage: UNK
     Route: 048
     Dates: start: 20050712
  5. LEVOTHYROXINE SODIUM [Concomitant]
     Indication: BLOOD THYROID STIMULATING HORMONE DECREASED
     Dosage: 100 UG, 1X/DAY
     Route: 048
     Dates: start: 20060926
  6. ANDROTARDYL [Concomitant]
     Dosage: 50 MG, CYCLIC, EVERY 2 WEEKS
     Route: 048
     Dates: start: 20090609
  7. HYDROCORTISONE [Concomitant]
     Indication: ISOLATED ADRENOCORTICOTROPIC HORMONE DEFICIENCY
     Dosage: 15 MG, 1X/DAY
     Route: 048
     Dates: start: 20060926
  8. LEVOTHYROXINE SODIUM [Concomitant]
     Indication: PRIMARY HYPOTHYROIDISM
  9. ANDROTARDYL [Concomitant]
     Dosage: 75 MG, CYCLIC, EVERY 2 WEEKS
     Route: 048
     Dates: start: 20080626, end: 20090608
  10. ANDROTARDYL [Concomitant]
     Indication: BLOOD LUTEINISING HORMONE DECREASED
     Dosage: 250 MG, MONTHLY
     Dates: start: 20050712
  11. PANTESTON [Concomitant]
     Indication: BLOOD LUTEINISING HORMONE DECREASED
     Dosage: 40 MG, 1X/DAY
     Route: 048
     Dates: start: 20050125

REACTIONS (1)
  - ABORTION SPONTANEOUS [None]
